FAERS Safety Report 8485700-9 (Version None)
Quarter: 2012Q3

REPORT INFORMATION
  Report Type: 
  Country: None (occurrence: None)
  Receive Date: 20120703
  Receipt Date: 20120628
  Transmission Date: 20120928
  Serious: No
  Sender: FDA-Public Use
  Company Number: US-PFIZER INC-2012156204

PATIENT
  Sex: Female
  Weight: 112 kg

DRUGS (1)
  1. PROTONIX [Suspect]
     Indication: GASTROOESOPHAGEAL REFLUX DISEASE
     Dosage: 40 MG, DAILY
     Route: 048

REACTIONS (3)
  - INSOMNIA [None]
  - SOMNOLENCE [None]
  - DRUG INEFFECTIVE [None]
